FAERS Safety Report 9899671 (Version 1)
Quarter: 2014Q1

REPORT INFORMATION
  Report Type: Spontaneous
  Country: FR (occurrence: FR)
  Receive Date: 20140214
  Receipt Date: 20140214
  Transmission Date: 20141002
  Serious: Yes (Hospitalization, Other)
  Sender: FDA-Public Use
  Company Number: FR-PFIZER INC-2014038350

PATIENT
  Age: 42 Year
  Sex: Female

DRUGS (10)
  1. XANAX [Suspect]
     Dosage: UNK
     Route: 048
     Dates: start: 201306
  2. XANAX [Suspect]
     Dosage: 15 MG (30 TABLETS OF 0.5 MG), SINGLE
     Route: 048
     Dates: start: 20140120, end: 20140120
  3. XANAX [Suspect]
     Dosage: UNK
     Route: 048
  4. XEROQUEL [Suspect]
     Dosage: UNK
     Route: 048
     Dates: start: 201306
  5. XEROQUEL [Suspect]
     Dosage: 10 DF, SINGLE
     Route: 048
     Dates: start: 20140120, end: 20140120
  6. XEROQUEL [Suspect]
     Dosage: UNK
     Route: 048
  7. LEXOMIL [Suspect]
     Dosage: UNK
     Route: 048
     Dates: start: 201306
  8. LEXOMIL [Suspect]
     Dosage: 30 DF, SINGLE
     Route: 048
     Dates: start: 20140120, end: 20140120
  9. LEXOMIL [Suspect]
     Dosage: UNK
     Route: 048
  10. EFFEXOR [Concomitant]
     Dosage: UNK
     Dates: start: 201306

REACTIONS (2)
  - Intentional drug misuse [Unknown]
  - Suicide attempt [Recovered/Resolved]
